FAERS Safety Report 6396488-X (Version None)
Quarter: 2009Q4

REPORT INFORMATION
  Report Type: 
  Country: None (occurrence: None)
  Receive Date: 20091012
  Receipt Date: 20090916
  Transmission Date: 20100525
  Serious: No
  Sender: FDA-Public Use
  Company Number: US-ROCHE-657897

PATIENT
  Age: 9 Year
  Sex: Male

DRUGS (1)
  1. TAMIFLU [Suspect]
     Indication: DRUG USE FOR UNKNOWN INDICATION
     Route: 048
     Dates: start: 20090912

REACTIONS (2)
  - ACCIDENTAL OVERDOSE [None]
  - NO ADVERSE EVENT [None]
